FAERS Safety Report 7058223-1 (Version None)
Quarter: 2010Q4

REPORT INFORMATION
  Report Type: 
  Country: None (occurrence: None)
  Receive Date: 20101022
  Receipt Date: 20101014
  Transmission Date: 20110411
  Serious: Yes (Hospitalization)
  Sender: FDA-Public Use
  Company Number: FR-WYE-H18224210

PATIENT
  Age: 49 Year
  Sex: Male

DRUGS (1)
  1. INIPOMP [Suspect]
     Route: 048
     Dates: end: 20100920

REACTIONS (3)
  - CAMPYLOBACTER INTESTINAL INFECTION [None]
  - ENTEROCOLITIS INFECTIOUS [None]
  - RECTAL HAEMORRHAGE [None]
